FAERS Safety Report 7808563-0 (Version None)
Quarter: 2011Q4

REPORT INFORMATION
  Report Type: 
  Country: None (occurrence: None)
  Receive Date: 20111012
  Receipt Date: 20111007
  Transmission Date: 20120403
  Serious: No
  Sender: FDA-Public Use
  Company Number: US-PFIZER INC-2011240279

PATIENT
  Sex: Female
  Weight: 57 kg

DRUGS (2)
  1. PREMARIN [Suspect]
     Indication: OESTROGEN THERAPY
     Dosage: 0.45 MG, 1X/DAY
     Route: 048
     Dates: start: 19650101, end: 20110801
  2. PREMARIN [Suspect]
     Dosage: 0.45 MG, 1X/DAY
     Dates: start: 20110830

REACTIONS (3)
  - DRUG EFFECT DECREASED [None]
  - HOT FLUSH [None]
  - NIGHT SWEATS [None]
